FAERS Safety Report 8119276-2 (Version None)
Quarter: 2012Q1

REPORT INFORMATION
  Report Type: 
  Country: None (occurrence: None)
  Receive Date: 20120207
  Receipt Date: 20120126
  Transmission Date: 20120608
  Serious: Yes (Hospitalization)
  Sender: FDA-Public Use
  Company Number: FR-ELI_LILLY_AND_COMPANY-FR201201007991

PATIENT
  Sex: Male

DRUGS (10)
  1. LEPTICUR [Concomitant]
     Dosage: 10 MG, BID
     Route: 048
     Dates: start: 20110910, end: 20111025
  2. ABACAVIR SULFATE/LAMIVUDINE [Concomitant]
     Dosage: 1 DF, QD
     Route: 048
     Dates: start: 20110802
  3. IMOVANE [Concomitant]
     Dosage: 7.5 MG, QD
     Route: 048
     Dates: start: 20110816
  4. EFFEXOR [Concomitant]
     Dosage: 37.5 MG, QD
     Route: 048
     Dates: start: 20110802, end: 20111017
  5. PRAZEPAM [Concomitant]
     Indication: ANXIETY
     Dosage: 10 MG, TID
     Route: 048
     Dates: start: 20110902
  6. PREZISTA [Concomitant]
     Dosage: 400 MG, BID
     Route: 048
     Dates: start: 20110802
  7. ZYPREXA [Suspect]
     Dosage: 30 MG, QD
     Route: 048
     Dates: start: 20110802, end: 20111012
  8. HALDOL [Concomitant]
     Dosage: 60 DF, TID
     Dates: start: 20111003, end: 20111016
  9. LAMICTAL [Concomitant]
     Dosage: 25 MG, QD
     Route: 048
     Dates: start: 20111002, end: 20111017
  10. NORVIR [Concomitant]
     Dosage: 100 MG, QD
     Route: 048
     Dates: start: 20110802

REACTIONS (2)
  - OVERDOSE [None]
  - HYPOTHERMIA [None]
